FAERS Safety Report 9270374 (Version 4)
Quarter: 2013Q2

REPORT INFORMATION
  Report Type: Report from Study
  Country: JP (occurrence: JP)
  Receive Date: 20130503
  Receipt Date: 20130614
  Transmission Date: 20140414
  Serious: Yes (Hospitalization)
  Sender: FDA-Public Use
  Company Number: JP-ABBOTT-13P-087-1081693-00

PATIENT
  Age: 43 Year
  Sex: Female
  Weight: 57 kg

DRUGS (23)
  1. RINDERON [Concomitant]
     Indication: PRODUCT USED FOR UNKNOWN INDICATION
     Dates: start: 20120113, end: 20120125
  2. MIKELAN [Concomitant]
     Indication: GLAUCOMA
     Dates: start: 20120113, end: 20130129
  3. MIKELAN [Concomitant]
     Indication: GLAUCOMA
     Dates: start: 20120113, end: 20130129
  4. TAPROS [Concomitant]
     Indication: GLAUCOMA
     Dates: start: 20120518, end: 20121207
  5. TAPROS [Concomitant]
     Indication: GLAUCOMA
     Dates: start: 20120518, end: 20121207
  6. FERRUM [Concomitant]
     Indication: ANAEMIA
     Dates: start: 20120822, end: 20121204
  7. MYDRIN P [Concomitant]
     Indication: OPHTHALMOLOGICAL EXAMINATION
     Dates: start: 20120612
  8. MYDRIN [Concomitant]
     Indication: OPHTHALMOLOGICAL EXAMINATION
     Dates: start: 20120612
  9. NEOSYNESIN [Concomitant]
     Indication: OPHTHALMOLOGICAL EXAMINATION
     Dates: start: 20120612
  10. NEOSYNESIN [Concomitant]
     Indication: OPHTHALMOLOGICAL EXAMINATION
     Dates: start: 20120612
  11. ALLEGRA [Concomitant]
     Indication: RASH
     Dates: start: 20130212
  12. HUMIRA [Suspect]
     Indication: UVEITIS
     Route: 058
     Dates: start: 20120626, end: 20130129
  13. HUMIRA [Suspect]
     Route: 058
     Dates: start: 20130312, end: 20130312
  14. PREDNISONE [Suspect]
     Indication: UVEITIS
     Route: 048
     Dates: start: 20120626, end: 20120709
  15. PREDNISONE [Suspect]
     Route: 048
     Dates: start: 20120710, end: 20120716
  16. PREDNISONE [Suspect]
     Route: 048
     Dates: start: 20120717, end: 20120723
  17. PREDNISONE [Suspect]
     Route: 048
     Dates: start: 20120724, end: 20120730
  18. PREDNISONE [Suspect]
     Route: 048
     Dates: start: 20120731, end: 20120806
  19. PREDNISONE [Suspect]
     Route: 048
     Dates: start: 20120807, end: 20120820
  20. PREDNISONE [Suspect]
     Route: 048
     Dates: start: 20120821, end: 20120903
  21. PREDNISONE [Suspect]
     Route: 048
     Dates: start: 20120904, end: 20120917
  22. PREDNISONE [Suspect]
     Route: 048
     Dates: start: 20120918, end: 20121001
  23. PREDNISONE [Suspect]
     Route: 048
     Dates: start: 20121002, end: 20121015

REACTIONS (1)
  - Lung adenocarcinoma stage IV [Not Recovered/Not Resolved]
